FAERS Safety Report 21927984 (Version 2)
Quarter: 2023Q1

REPORT INFORMATION
  Report Type: Spontaneous
  Country: PT (occurrence: None)
  Receive Date: 20230130
  Receipt Date: 20230315
  Transmission Date: 20230417
  Serious: Yes (Hospitalization)
  Sender: FDA-Public Use
  Company Number: None

PATIENT
  Age: 65 Year
  Sex: Male
  Weight: 60 kg

DRUGS (5)
  1. COTELLIC [Suspect]
     Active Substance: COBIMETINIB
     Indication: Erdheim-Chester disease
     Dosage: 20 MG 3X/DAY FOR 21 DAYS OF 28/28 DAYS
     Route: 065
     Dates: start: 20190715, end: 20221031
  2. AMLODIPINE [Concomitant]
     Active Substance: AMLODIPINE BESYLATE
  3. FUROSEMIDE [Concomitant]
     Active Substance: FUROSEMIDE
  4. RABEPRAZOLE [Concomitant]
     Active Substance: RABEPRAZOLE
  5. FLUTICASONE PROPIONATE [Concomitant]
     Active Substance: FLUTICASONE PROPIONATE

REACTIONS (1)
  - Myasthenia gravis [Unknown]

NARRATIVE: CASE EVENT DATE: 20221031
